FAERS Safety Report 12570985 (Version 12)
Quarter: 2018Q4

REPORT INFORMATION
  Report Type: Spontaneous
  Country: US (occurrence: US)
  Receive Date: 20160719
  Receipt Date: 20181102
  Transmission Date: 20190204
  Serious: Yes (Other)
  Sender: FDA-Public Use
  Company Number: US-PFIZER INC-2016345104

PATIENT
  Age: 72 Year
  Sex: Female
  Weight: 95.25 kg

DRUGS (22)
  1. PREDNISONE. [Concomitant]
     Active Substance: PREDNISONE
     Indication: SWELLING
     Dosage: 4 MG, DAILY
     Dates: start: 2009
  2. METOPROLOL TARTRATE. [Concomitant]
     Active Substance: METOPROLOL TARTRATE
     Indication: HYPERTROPHIC CARDIOMYOPATHY
     Dosage: 50 MG, 2X/DAY (ONE MORNING AND EVENING)
  3. LORAZEPAM. [Concomitant]
     Active Substance: LORAZEPAM
     Indication: ANXIETY
     Dosage: 1.5 MG, AS NEEDED
  4. TRAMADOL. [Concomitant]
     Active Substance: TRAMADOL
     Indication: ARTHRITIS
     Dosage: 50 MG, AS NEEDED (EVERY 4 TO 6 HOURS TAKE WHEN NEEDED)
     Dates: start: 2009
  5. XELJANZ XR [Suspect]
     Active Substance: TOFACITINIB CITRATE
     Dosage: 11 MG, 1X/DAY
     Route: 048
     Dates: start: 20160811
  6. METHOTREXATE. [Concomitant]
     Active Substance: METHOTREXATE
     Indication: ARTHRITIS
     Dosage: 20 MG, UNK (2.5MG 8 TABLETS ONCE A WEEK)
     Dates: start: 2009
  7. VERAPAMIL [Concomitant]
     Active Substance: VERAPAMIL HYDROCHLORIDE
     Indication: BLOOD PRESSURE ABNORMAL
     Dosage: 240 MG, 1X/DAY
  8. VITAMIN B COMPLEX WITH C [Concomitant]
     Active Substance: ASCORBIC ACID\CALCIUM PANTOTHENATE\CYANOCOBALAMIN\NIACINAMIDE\PYRIDOXINE HYDROCHLORIDE\RIBOFLAVIN\THIAMINE MONONITRATE
     Indication: SUPPLEMENTATION THERAPY
     Dosage: ONE A DAY
     Dates: start: 2009
  9. VENTOLIN HFA [Concomitant]
     Active Substance: ALBUTEROL SULFATE
     Indication: WHEEZING
     Dosage: 90 UG, AS NEEDED (90MCG UP TO TWO PUFFS FOUR TIMES A DAY IF NEEDED)
  10. XELJANZ XR [Suspect]
     Active Substance: TOFACITINIB CITRATE
     Indication: RHEUMATOID ARTHRITIS
     Dosage: 11 MG, 1X/DAY
     Route: 048
     Dates: start: 20160622
  11. OXYBUTYNIN. [Concomitant]
     Active Substance: OXYBUTYNIN CHLORIDE
     Indication: BLADDER DISORDER
     Dosage: 10 MG, 1X/DAY  (ONE IN EVENING)
  12. FUROSEMIDE. [Concomitant]
     Active Substance: FUROSEMIDE
     Indication: PERIPHERAL SWELLING
     Dosage: 40 MG, AS NEEDED
  13. CALCIUM PLUS D3 [Concomitant]
     Indication: BONE DISORDER
     Dosage: (CALCIUM:1200MG/ D3: 1000UNIT) ONE A DAY
     Dates: start: 2009
  14. VITAMIN D3 [Concomitant]
     Active Substance: CHOLECALCIFEROL
     Dosage: 1000 IU, 1X/DAY
     Dates: start: 2009
  15. XELJANZ XR [Suspect]
     Active Substance: TOFACITINIB CITRATE
     Dosage: 11 MG, 1X/DAY
     Route: 048
     Dates: start: 2016
  16. KLOR-CON [Concomitant]
     Active Substance: POTASSIUM CHLORIDE
     Dosage: 40 MG, 1X/DAY (TWO 20MG ONCE IN MORNING)
  17. GAS-X [Concomitant]
     Active Substance: DIMETHICONE
     Indication: FLATULENCE
     Dosage: UNK, AS NEEDED (125 WHEN NEEDED)
     Dates: start: 2009
  18. XELJANZ XR [Suspect]
     Active Substance: TOFACITINIB CITRATE
     Dosage: 11 MG, 1X/DAY
     Route: 048
     Dates: start: 2015
  19. LEVOTHYROXINE. [Concomitant]
     Active Substance: LEVOTHYROXINE
     Dosage: 125 MG, DAILY
     Dates: start: 1983
  20. PRAVASTATIN SODIUM. [Concomitant]
     Active Substance: PRAVASTATIN SODIUM
     Indication: BLOOD CHOLESTEROL ABNORMAL
     Dosage: 40 MG, 1X/DAY (ONE IN THE EVENING BEFORE BED)
  21. ASPIRIN. [Concomitant]
     Active Substance: ASPIRIN
     Indication: COAGULOPATHY
     Dosage: 81 MG, 1X/DAY
  22. FOLIC ACID. [Concomitant]
     Active Substance: FOLIC ACID
     Indication: IMMUNE SYSTEM DISORDER
     Dosage: 800 MG, 1X/DAY (IN THE EVENING)
     Dates: start: 2009

REACTIONS (14)
  - Nasopharyngitis [Unknown]
  - Pneumonia [Unknown]
  - Osteoporosis [Not Recovered/Not Resolved]
  - Upper respiratory tract infection [Unknown]
  - Abdominal pain upper [Unknown]
  - Rhinorrhoea [Not Recovered/Not Resolved]
  - Diarrhoea [Unknown]
  - Sinusitis [Recovered/Resolved]
  - Oropharyngeal pain [Recovered/Resolved]
  - Cough [Unknown]
  - Seasonal allergy [Unknown]
  - Viral infection [Unknown]
  - Weight increased [Unknown]
  - Influenza [Unknown]

NARRATIVE: CASE EVENT DATE: 20160713
